FAERS Safety Report 10081127 (Version 1)
Quarter: 2014Q2

REPORT INFORMATION
  Report Type: Spontaneous
  Country: US (occurrence: US)
  Receive Date: 20140416
  Receipt Date: 20140416
  Transmission Date: 20141212
  Serious: Yes (Hospitalization)
  Sender: FDA-Public Use
  Company Number: US-PFIZER INC-2014101379

PATIENT
  Age: 33 Year
  Sex: Male

DRUGS (11)
  1. VISTARIL [Suspect]
     Dosage: UNK
     Dates: end: 20140310
  2. ABILIFY [Suspect]
     Indication: SCHIZOAFFECTIVE DISORDER
     Dosage: UNK
     Dates: start: 20140310
  3. ABILIFY [Suspect]
     Indication: BIPOLAR DISORDER
  4. ABILIFY [Suspect]
     Indication: PSYCHOTIC DISORDER
  5. ABILIFY [Suspect]
     Indication: SCHIZOAFFECTIVE DISORDER
     Dosage: UNK
     Dates: start: 20140310
  6. ABILIFY [Suspect]
     Indication: BIPOLAR DISORDER
  7. ABILIFY [Suspect]
     Indication: PSYCHOTIC DISORDER
  8. RISPERDAL [Suspect]
     Dosage: UNK
     Dates: end: 20140310
  9. CYMBALTA [Suspect]
     Dosage: UNK
     Dates: end: 20140310
  10. COGENTIN [Suspect]
     Dosage: UNK
     Dates: end: 20140310
  11. PRILOSEC [Concomitant]
     Indication: GASTROOESOPHAGEAL REFLUX DISEASE
     Dosage: UNK

REACTIONS (7)
  - Cold sweat [Not Recovered/Not Resolved]
  - Nausea [Not Recovered/Not Resolved]
  - Vomiting [Unknown]
  - Delirium [Unknown]
  - Speech disorder [Unknown]
  - Dysarthria [Unknown]
  - Decreased appetite [Not Recovered/Not Resolved]
